FAERS Safety Report 4759392-6 (Version None)
Quarter: 2005Q3

REPORT INFORMATION
  Report Type: 
  Country: None (occurrence: None)
  Receive Date: 20050831
  Receipt Date: 20050816
  Transmission Date: 20060218
  Serious: Yes (Other)
  Sender: FDA-Public Use
  Company Number: DSA_26802_2005

PATIENT
  Age: 48 Year
  Sex: Female
  Weight: 77.1115 kg

DRUGS (5)
  1. ATIVAN [Suspect]
     Indication: GENERALISED ANXIETY DISORDER
     Dosage: 2 MG TID PO
     Route: 048
  2. ATIVAN [Suspect]
     Indication: INSOMNIA
     Dosage: 2 MG TID PO
     Route: 048
  3. SYNTHROID [Concomitant]
  4. LEVOXYL [Concomitant]
  5. CYTOML [Concomitant]

REACTIONS (8)
  - AMNESIA [None]
  - ANXIETY [None]
  - BRAIN DAMAGE [None]
  - DRUG INEFFECTIVE [None]
  - HEADACHE [None]
  - LOSS OF CONSCIOUSNESS [None]
  - PHARMACEUTICAL PRODUCT COMPLAINT [None]
  - STOMACH DISCOMFORT [None]
